FAERS Safety Report 6659883-7 (Version None)
Quarter: 2010Q1

REPORT INFORMATION
  Report Type: 
  Country: None (occurrence: None)
  Receive Date: 20100330
  Receipt Date: 20100330
  Transmission Date: 20100710
  Serious: Yes (Hospitalization, Disabling)
  Sender: FDA-Public Use
  Company Number: None

PATIENT
  Age: 38 Year
  Sex: Female
  Weight: 80.7403 kg

DRUGS (1)
  1. AVELOX [Suspect]
     Indication: BRONCHITIS
     Dosage: 1 DAILY BUCCAL
     Route: 002
     Dates: start: 20100221, end: 20100223

REACTIONS (4)
  - BURNING SENSATION [None]
  - PRURITUS [None]
  - RASH GENERALISED [None]
  - THERAPEUTIC RESPONSE DECREASED [None]
